FAERS Safety Report 6842949-6 (Version None)
Quarter: 2010Q3

REPORT INFORMATION
  Report Type: 
  Country: None (occurrence: None)
  Receive Date: 20100714
  Receipt Date: 20070809
  Transmission Date: 20110219
  Serious: No
  Sender: FDA-Public Use
  Company Number: US-PFIZER INC-2007067274

PATIENT
  Sex: Female
  Weight: 48.1 kg

DRUGS (3)
  1. CHANTIX [Suspect]
     Indication: EX-TOBACCO USER
     Dates: start: 20070806
  2. CELEXA [Concomitant]
     Indication: POST-TRAUMATIC STRESS DISORDER
  3. THYROID HORMONES [Concomitant]

REACTIONS (3)
  - ABNORMAL DREAMS [None]
  - INSOMNIA [None]
  - IRRITABILITY [None]
